FAERS Safety Report 6763487-5 (Version None)
Quarter: 2010Q2

REPORT INFORMATION
  Report Type: 
  Country: None (occurrence: None)
  Receive Date: 20100610
  Receipt Date: 20100510
  Transmission Date: 20101027
  Serious: No
  Sender: FDA-Public Use
  Company Number: US-BAYER-200917905BCC

PATIENT
  Age: 84 Year
  Sex: Female
  Weight: 58 kg

DRUGS (13)
  1. ALEVE (CAPLET) [Suspect]
     Indication: PROCTALGIA
     Dosage: CONSUMER REPORTED USING 4 ALEVE ON UNKNOWN DATES
     Route: 048
  2. ALEVE (CAPLET) [Suspect]
     Dosage: TOTAL DAILY DOSE: 220 MG  UNIT DOSE: 220 MG
     Route: 048
     Dates: start: 20100505, end: 20100506
  3. ALEVE (CAPLET) [Suspect]
     Dosage: CONSUMER ALSO USED AN UNKNOWN ALEVE, WITH UNKNOWN LOT
     Route: 048
  4. ALEVE (CAPLET) [Suspect]
     Route: 048
  5. ZOLOFT [Concomitant]
     Route: 065
  6. SEROQUEL [Concomitant]
     Route: 065
  7. UNKNOWN ANXIETY MEDICATION [Concomitant]
     Route: 065
  8. TYLENOL [Concomitant]
     Route: 065
  9. UNKNOWN PAIN MEDICATION [Concomitant]
     Route: 065
  10. PHILIP'S COLON HEALTH [Concomitant]
     Indication: MEDICAL DIET
     Dosage: TOTAL DAILY DOSE: 1 DF
     Route: 048
  11. NAMENDA [Concomitant]
     Route: 065
  12. LISINOPRIL [Concomitant]
     Route: 065
  13. MINUTE MAID VITAMINS [Concomitant]
     Route: 065

REACTIONS (4)
  - BACK PAIN [None]
  - NECK PAIN [None]
  - PROCTALGIA [None]
  - TINNITUS [None]
